FAERS Safety Report 11079573 (Version 1)
Quarter: 2015Q2

REPORT INFORMATION
  Report Type: Spontaneous
  Country: PH (occurrence: PH)
  Receive Date: 20150430
  Receipt Date: 20150430
  Transmission Date: 20150821
  Serious: Yes (Hospitalization)
  Sender: FDA-Public Use
  Company Number: PH-ASTELLAS-2015US014204

PATIENT

DRUGS (1)
  1. ERLOTINIB [Suspect]
     Active Substance: ERLOTINIB
     Indication: LUNG NEOPLASM MALIGNANT
     Dosage: 75 MG, ONCE DAILY (150 TABLET CUT IN HALF)
     Route: 048

REACTIONS (4)
  - Vomiting [Unknown]
  - Headache [Unknown]
  - Dizziness [Unknown]
  - Vision blurred [Unknown]
